FAERS Safety Report 19217282 (Version 1)
Quarter: 2021Q2

REPORT INFORMATION
  Report Type: Report from Study
  Country: US (occurrence: US)
  Receive Date: 20210505
  Receipt Date: 20210505
  Transmission Date: 20210717
  Serious: Yes (Other)
  Sender: FDA-Public Use
  Company Number: US-MYLANLABS-2021M1026391

PATIENT
  Sex: Female

DRUGS (4)
  1. IBUPROFEN. [Suspect]
     Active Substance: IBUPROFEN
     Indication: EBSTEIN^S ANOMALY
     Dosage: MAINTENANCE THERAPY
     Route: 065
  2. INDOMETACIN [Suspect]
     Active Substance: INDOMETHACIN
     Indication: EBSTEIN^S ANOMALY
     Dosage: 100 MILLIGRAM, INITIAL THERAPY
     Route: 065
  3. INDOMETACIN [Suspect]
     Active Substance: INDOMETHACIN
     Indication: TRICUSPID VALVE DISEASE
     Dosage: TRANSITIONED TO LOW?DOSE INDOMETACIN THERAPY ;THRICE DAILY
     Route: 065
  4. IBUPROFEN. [Suspect]
     Active Substance: IBUPROFEN
     Indication: TRICUSPID VALVE DISEASE

REACTIONS (2)
  - Maternal exposure during pregnancy [Recovered/Resolved]
  - Oligohydramnios [Recovered/Resolved]
